FAERS Safety Report 26047885 (Version 1)
Quarter: 2025Q4

REPORT INFORMATION
  Report Type: Report from Study
  Country: AR (occurrence: AR)
  Receive Date: 20251114
  Receipt Date: 20251114
  Transmission Date: 20260117
  Serious: Yes (Life-Threatening, Hospitalization, Other)
  Sender: GLAXOSMITHKLINE
  Company Number: AR-GSK BIOPHARMA ARGENTINA S.A.-AR2025AMR118734

PATIENT
  Age: 82 Year
  Sex: Female

DRUGS (1)
  1. MEPOLIZUMAB [Suspect]
     Active Substance: MEPOLIZUMAB
     Indication: Asthma
     Dosage: 100 MG, MO

REACTIONS (8)
  - Intestinal obstruction [Recovered/Resolved]
  - Multiple organ dysfunction syndrome [Recovered/Resolved]
  - Abdominal hernia [Unknown]
  - Anaesthetic complication cardiac [Unknown]
  - Decreased immune responsiveness [Unknown]
  - Dizziness [Not Recovered/Not Resolved]
  - Malaise [Not Recovered/Not Resolved]
  - Product storage error [Unknown]

NARRATIVE: CASE EVENT DATE: 20251007
